FAERS Safety Report 5247817-1 (Version None)
Quarter: 2007Q1

REPORT INFORMATION
  Report Type: 
  Country: None (occurrence: None)
  Receive Date: 20070227
  Receipt Date: 20070227
  Transmission Date: 20070707
  Serious: Yes (Hospitalization)
  Sender: FDA-Public Use
  Company Number: None

PATIENT
  Sex: Male
  Weight: 72.3487 kg

DRUGS (20)
  1. ESTRAMUSTINE [Suspect]
     Indication: PROSTATE CANCER
     Dosage: 280 MG QD X14DAYS Q 28DAY PO
     Route: 048
     Dates: start: 20070104, end: 20070208
  2. ETOPOSIDE [Suspect]
     Indication: PROSTATE CANCER
     Dosage: 100 MG QD X14DAYS Q 28DAY PO
     Route: 048
     Dates: start: 20070204, end: 20070208
  3. AMBIEN [Concomitant]
  4. COUMADIN [Concomitant]
  5. PHENERGAN HCL [Concomitant]
  6. ASPIRIN [Concomitant]
  7. OXYCODONE HCL [Concomitant]
  8. OXYCONTIN [Concomitant]
  9. AVANDIA [Concomitant]
  10. GLIMEPIRIDE [Concomitant]
  11. METFORMIN HCL [Concomitant]
  12. LOTREL [Concomitant]
  13. ZOCOR [Concomitant]
  14. LEXAPRO [Concomitant]
  15. PROTONIX [Concomitant]
  16. REGLAN [Concomitant]
  17. LACTULOS [Concomitant]
  18. NYSTATIN [Concomitant]
  19. LASIX [Concomitant]
  20. KLOR-CON [Concomitant]

REACTIONS (1)
  - DEEP VEIN THROMBOSIS [None]
